FAERS Safety Report 8158838-3 (Version None)
Quarter: 2012Q1

REPORT INFORMATION
  Report Type: 
  Country: None (occurrence: None)
  Receive Date: 20120223
  Receipt Date: 20120214
  Transmission Date: 20120608
  Serious: Yes (Other)
  Sender: FDA-Public Use
  Company Number: GB-SANOFI-AVENTIS-2012SA010670

PATIENT
  Age: 76 Year
  Sex: Female
  Weight: 75 kg

DRUGS (5)
  1. TRAMADOL HCL [Concomitant]
     Indication: RHEUMATOID ARTHRITIS
     Dosage: AT NIGHT. THERAPY CONTINUED
     Route: 065
  2. METHYLPREDNISOLONE [Concomitant]
     Indication: RHEUMATOID ARTHRITIS
     Dosage: SINGLE INJECTION
     Route: 065
     Dates: start: 20111214, end: 20111214
  3. LEVOTHYROXINE SODIUM [Concomitant]
     Dosage: THERAPY CONTINUED
     Route: 065
  4. ACETAMINOPHEN [Concomitant]
     Indication: RHEUMATOID ARTHRITIS
  5. HYDROXYCHLOROQUINE SULFATE [Suspect]
     Indication: RHEUMATOID ARTHRITIS
     Route: 065
     Dates: start: 20111214, end: 20120107

REACTIONS (2)
  - ERYTHEMA MULTIFORME [None]
  - MYCOPLASMA INFECTION [None]
